FAERS Safety Report 14282174 (Version 3)
Quarter: 2021Q3

REPORT INFORMATION
  Report Type: Spontaneous
  Country: FR (occurrence: FR)
  Receive Date: 20171213
  Receipt Date: 20210721
  Transmission Date: 20211014
  Serious: Yes (Other)
  Sender: FDA-Public Use
  Company Number: FR-BAUSCH-BL-2017-033221

PATIENT
  Sex: Female

DRUGS (24)
  1. VINCRISTINE [Suspect]
     Active Substance: VINCRISTINE
     Indication: ACUTE LYMPHOCYTIC LEUKAEMIA
     Dosage: 0.8 MG, UNK
     Route: 065
     Dates: start: 20170711, end: 20170711
  2. CYTARABINE. [Suspect]
     Active Substance: CYTARABINE
     Indication: ACUTE LYMPHOCYTIC LEUKAEMIA
     Dosage: 30 MG, UNK
     Route: 037
     Dates: start: 20170928, end: 20170928
  3. ARACYTINE [Suspect]
     Active Substance: CYTARABINE
     Indication: ACUTE LYMPHOCYTIC LEUKAEMIA
     Dosage: 30 MG, UNK
     Route: 037
     Dates: start: 2017, end: 2017
  4. VINCRISTINE [Suspect]
     Active Substance: VINCRISTINE
     Dosage: 0.88 MG, 1X/DAY:QD
     Route: 065
     Dates: start: 20170925, end: 20171009
  5. DOXORUBICIN [Suspect]
     Active Substance: DOXORUBICIN
     Dosage: 13.2 MG, UNK
     Route: 065
     Dates: start: 20170523, end: 20170523
  6. PEGASPARGASE [Suspect]
     Active Substance: PEGASPARGASE
     Dosage: 1425 IU, 1X/DAY:QD
     Route: 042
     Dates: start: 20170928, end: 20170928
  7. VINCRISTINE [Suspect]
     Active Substance: VINCRISTINE
     Dosage: 0.8 MG, UNK
     Route: 065
     Dates: start: 20170523, end: 20170523
  8. CYCLOPHOSPHAMIDE. [Suspect]
     Active Substance: CYCLOPHOSPHAMIDE
     Indication: ACUTE LYMPHOCYTIC LEUKAEMIA
     Dosage: 540 MG, UNK
     Route: 065
     Dates: start: 20170620, end: 20170620
  9. DEXAMETHASONE. [Suspect]
     Active Substance: DEXAMETHASONE
     Dosage: UNK
     Route: 065
     Dates: start: 20170925, end: 20171015
  10. HYDROCORTISONE. [Suspect]
     Active Substance: HYDROCORTISONE
     Indication: ACUTE LYMPHOCYTIC LEUKAEMIA
     Dosage: 15 MG, 1X/DAY:QD
     Route: 037
     Dates: start: 20170928, end: 20170928
  11. DOXORUBICIN [Suspect]
     Active Substance: DOXORUBICIN
     Indication: ACUTE LYMPHOCYTIC LEUKAEMIA
     Dosage: 13.2 MG, UNK
     Route: 065
     Dates: start: 20170606, end: 20170606
  12. DOXORUBICIN [Suspect]
     Active Substance: DOXORUBICIN
     Dosage: 13.2 MG, UNK
     Route: 065
     Dates: start: 20170530, end: 20170530
  13. DOXORUBICIN [Suspect]
     Active Substance: DOXORUBICIN
     Dosage: 14.4 UNK, UNK
     Route: 065
     Dates: start: 20170925, end: 20171009
  14. VINCRISTINE [Suspect]
     Active Substance: VINCRISTINE
     Route: 065
     Dates: start: 20170704, end: 20170704
  15. PEGASPARGASE [Suspect]
     Active Substance: PEGASPARGASE
     Indication: ACUTE LYMPHOCYTIC LEUKAEMIA
     Dosage: 1350 IU, UNK
     Route: 065
     Dates: start: 20170526, end: 20170526
  16. PEGASPARGASE [Suspect]
     Active Substance: PEGASPARGASE
     Dosage: 1350 IU, UNK
     Route: 065
     Dates: start: 20170704, end: 20170704
  17. DEXAMETHASONE. [Suspect]
     Active Substance: DEXAMETHASONE
     Indication: ACUTE LYMPHOCYTIC LEUKAEMIA
     Dosage: 42 MG, UNK
     Route: 065
     Dates: start: 20170909, end: 20171015
  18. VINCRISTINE [Suspect]
     Active Substance: VINCRISTINE
     Dosage: 0.8 MG, UNK
     Route: 065
     Dates: start: 20170606, end: 20170606
  19. METHOTREXATE. [Suspect]
     Active Substance: METHOTREXATE
     Indication: ACUTE LYMPHOCYTIC LEUKAEMIA
     Dosage: 12 MG, UNK
     Route: 037
     Dates: start: 20170928, end: 2017
  20. METHOTREXATE. [Suspect]
     Active Substance: METHOTREXATE
     Dosage: 10 MG, UNK
     Route: 037
     Dates: start: 201705, end: 201705
  21. VINCRISTINE [Suspect]
     Active Substance: VINCRISTINE
     Dosage: 0.8 MG, UNK
     Route: 065
     Dates: start: 20170530, end: 20170530
  22. ARACYTINE [Suspect]
     Active Substance: CYTARABINE
     Dosage: 25 MG, UNK
     Route: 037
  23. ARACYTINE [Suspect]
     Active Substance: CYTARABINE
     Dosage: 25 MG, UNK
     Route: 065
     Dates: start: 201705, end: 201705
  24. 6?MERCAPTOPURINE MONOHYDRATE [Suspect]
     Active Substance: MERCAPTOPURINE
     Indication: ACUTE LYMPHOCYTIC LEUKAEMIA
     Dosage: UNK
     Route: 065

REACTIONS (1)
  - Hyperlipidaemia [Not Recovered/Not Resolved]

NARRATIVE: CASE EVENT DATE: 20171019
